FAERS Safety Report 7657691-1 (Version None)
Quarter: 2011Q3

REPORT INFORMATION
  Report Type: 
  Country: None (occurrence: None)
  Receive Date: 20110804
  Receipt Date: 20110726
  Transmission Date: 20111222
  Serious: Yes (Hospitalization, Other)
  Sender: FDA-Public Use
  Company Number: US-ASTRAZENECA-2011SE44479

PATIENT
  Age: 49 Year
  Sex: Female
  Weight: 123.4 kg

DRUGS (16)
  1. LEVOTHROID [Concomitant]
     Route: 048
  2. GEODON [Suspect]
     Route: 048
     Dates: start: 20110601
  3. LOVASTATIN [Concomitant]
     Route: 048
  4. GEODON [Suspect]
     Indication: BIPOLAR DISORDER
     Route: 048
     Dates: start: 20110101
  5. OMEPRAZOLE [Concomitant]
     Route: 048
  6. FLUOXETINE [Suspect]
     Indication: DEPRESSION
     Dates: start: 20110501, end: 20110101
  7. LISINOPRIL [Concomitant]
     Route: 048
  8. LUNESTA [Concomitant]
     Route: 048
  9. SEROQUEL [Suspect]
     Indication: BIPOLAR DISORDER
     Route: 048
     Dates: start: 20110501, end: 20110101
  10. TRANXENE [Concomitant]
     Indication: ANXIETY
     Dates: start: 20110601
  11. SEROQUEL [Suspect]
     Indication: DEPRESSION
     Route: 048
     Dates: start: 20110501, end: 20110101
  12. FLUOXETINE [Suspect]
     Indication: BIPOLAR DISORDER
     Dates: start: 20110501, end: 20110101
  13. GEODON [Suspect]
     Route: 048
     Dates: start: 20110601
  14. ETODOLAC [Concomitant]
     Route: 048
  15. LYRICA [Suspect]
     Indication: FIBROMYALGIA
     Route: 048
     Dates: end: 20100101
  16. GEODON [Suspect]
     Indication: DEPRESSION
     Route: 048
     Dates: start: 20110101

REACTIONS (5)
  - MAJOR DEPRESSION [None]
  - DRUG HYPERSENSITIVITY [None]
  - SUICIDAL IDEATION [None]
  - HERNIA REPAIR [None]
  - HERNIA [None]
